FAERS Safety Report 7232811-1 (Version None)
Quarter: 2011Q1

REPORT INFORMATION
  Report Type: 
  Country: None (occurrence: None)
  Receive Date: 20110119
  Receipt Date: 20110105
  Transmission Date: 20110831
  Serious: Yes (Hospitalization)
  Sender: FDA-Public Use
  Company Number: FR-CELGENEUS-056-C5013-11010296

PATIENT
  Sex: Male
  Weight: 83 kg

DRUGS (20)
  1. CACIT D3 [Concomitant]
     Indication: OSTEOPOROSIS PROPHYLAXIS
     Route: 048
     Dates: start: 19900101
  2. CC-5013\PLACEBO [Suspect]
     Route: 048
     Dates: start: 20101214, end: 20110104
  3. EFFERALGAN CODEINE [Concomitant]
     Route: 048
     Dates: start: 20100917
  4. DOCETAXEL [Suspect]
     Indication: PROSTATE CANCER
     Route: 065
     Dates: start: 20101012
  5. DOCETAXEL [Suspect]
     Route: 065
     Dates: start: 20101214, end: 20110104
  6. PLAVIX [Concomitant]
     Indication: ARTERITIS
     Route: 048
     Dates: start: 19900101
  7. CARDENSIEL [Concomitant]
     Indication: ATRIAL FLUTTER
     Route: 048
     Dates: start: 20101102
  8. CC-5013\PLACEBO [Suspect]
     Indication: PROSTATE CANCER
     Route: 048
     Dates: start: 20101012
  9. METFORMIN HCL [Concomitant]
     Route: 048
     Dates: start: 19900101
  10. BRICANYL [Concomitant]
     Indication: COUGH
     Route: 055
     Dates: start: 20101025
  11. LOVENOX [Concomitant]
     Indication: ATRIAL FLUTTER
     Route: 058
     Dates: start: 20101103
  12. LASIX [Concomitant]
     Route: 048
     Dates: start: 20101102
  13. TRIATEC [Concomitant]
     Route: 048
     Dates: start: 19900101
  14. PREDNISONE [Suspect]
     Route: 065
     Dates: start: 20101214, end: 20110104
  15. PREDNISONE [Suspect]
     Indication: PROSTATE CANCER
     Route: 065
     Dates: start: 20101012
  16. PRAVASTATIN [Concomitant]
     Route: 048
     Dates: start: 19900101
  17. FORLAX [Concomitant]
     Indication: CONSTIPATION
     Route: 048
     Dates: start: 20100920
  18. TOPLEXIL [Concomitant]
     Indication: COUGH
     Route: 048
     Dates: start: 20101025
  19. PREVISCAN [Concomitant]
     Indication: ATRIAL FLUTTER
     Route: 048
     Dates: start: 20101102
  20. EPREX [Concomitant]
     Route: 058
     Dates: start: 20101214

REACTIONS (1)
  - PERFORMANCE STATUS DECREASED [None]
